FAERS Safety Report 4934086-2 (Version None)
Quarter: 2006Q1

REPORT INFORMATION
  Report Type: 
  Country: None (occurrence: None)
  Receive Date: 20060303
  Receipt Date: 20060221
  Transmission Date: 20060701
  Serious: Yes (Other)
  Sender: FDA-Public Use
  Company Number: 2006025537

PATIENT
  Age: 15 Year
  Sex: Male
  Weight: 83.4619 kg

DRUGS (2)
  1. DRAMAMINE [Suspect]
     Indication: EUPHORIC MOOD
     Dosage: ORAL
     Route: 048
     Dates: start: 20060101
  2. ETHANOL (ETHANOL) [Suspect]
     Indication: EUPHORIC MOOD
     Dosage: ORAL
     Route: 048

REACTIONS (3)
  - ALCOHOL USE [None]
  - IRRITABILITY [None]
  - SOMNOLENCE [None]
